FAERS Safety Report 11823986 (Version 1)
Quarter: 2015Q4

REPORT INFORMATION
  Report Type: Report from Study
  Country: US (occurrence: US)
  Receive Date: 20151210
  Receipt Date: 20151210
  Transmission Date: 20160305
  Serious: Yes (Hospitalization)
  Sender: FDA-Public Use
  Company Number: US-ABBVIE-15K-163-1513443-00

PATIENT
  Age: 77 Year
  Sex: Male

DRUGS (1)
  1. HUMIRA [Suspect]
     Active Substance: ADALIMUMAB
     Indication: CROHN^S DISEASE
     Route: 058
     Dates: end: 20150521

REACTIONS (10)
  - Ligament sprain [Unknown]
  - Fall [Recovering/Resolving]
  - Seizure [Unknown]
  - Partial seizures [Unknown]
  - Seizure [Recovered/Resolved]
  - Fall [Unknown]
  - Subdural haematoma [Not Recovered/Not Resolved]
  - Crohn^s disease [Unknown]
  - Neck pain [Recovering/Resolving]
  - Headache [Recovering/Resolving]

NARRATIVE: CASE EVENT DATE: 2015
